FAERS Safety Report 10274238 (Version 2)
Quarter: 2014Q3

REPORT INFORMATION
  Report Type: Spontaneous
  Country: US (occurrence: US)
  Receive Date: 20140702
  Receipt Date: 20140708
  Transmission Date: 20150326
  Serious: No
  Sender: FDA-Public Use
  Company Number: US-PFIZER INC-2014180071

PATIENT
  Age: 65 Year
  Sex: Female
  Weight: 52.61 kg

DRUGS (3)
  1. LEXAPRO [Concomitant]
     Active Substance: ESCITALOPRAM OXALATE
     Indication: DEPRESSION
     Dosage: UNK
  2. GABAPENTIN. [Concomitant]
     Active Substance: GABAPENTIN
     Indication: NEUROPATHY PERIPHERAL
     Dosage: UNK
  3. NICOTROL [Suspect]
     Active Substance: NICOTINE
     Indication: SMOKING CESSATION THERAPY
     Dosage: TWO SPRAY ONE IN EACH NOSTRIL, 2X/DAY
     Route: 045
     Dates: start: 20140623, end: 20140625

REACTIONS (8)
  - Feeling abnormal [Unknown]
  - Sneezing [Unknown]
  - Drug ineffective [Unknown]
  - Malaise [Unknown]
  - Rhinalgia [Unknown]
  - Dizziness [Unknown]
  - Rhinorrhoea [Unknown]
  - Nasal discomfort [Unknown]

NARRATIVE: CASE EVENT DATE: 201406
